FAERS Safety Report 10015991 (Version 2)
Quarter: 2014Q2

REPORT INFORMATION
  Report Type: Spontaneous
  Country: JP (occurrence: JP)
  Receive Date: 20140317
  Receipt Date: 20140512
  Transmission Date: 20141212
  Serious: Yes (Hospitalization)
  Sender: FDA-Public Use
  Company Number: JP-PFIZER INC-2014073947

PATIENT
  Age: 91 Year
  Sex: Female

DRUGS (3)
  1. HALCION [Suspect]
     Indication: SLEEP DISORDER
     Dosage: 0.25 MG, DAILY
     Route: 048
     Dates: start: 201202, end: 20140308
  2. RIZE [Suspect]
     Dosage: 15 MG, DAILY
     Route: 048
     Dates: end: 20140308
  3. DEPAS [Suspect]
     Dosage: 0.5 MG, DAILY
     Route: 048
     Dates: end: 20140308

REACTIONS (6)
  - Fracture [Unknown]
  - Dizziness [Unknown]
  - Anxiety [Unknown]
  - Hallucination [Unknown]
  - Hallucination, visual [Unknown]
  - Drug withdrawal syndrome [Recovering/Resolving]
